FAERS Safety Report 6006658-8 (Version None)
Quarter: 2008Q4

REPORT INFORMATION
  Report Type: 
  Country: None (occurrence: None)
  Receive Date: 20081217
  Receipt Date: 20071001
  Transmission Date: 20090506
  Serious: Yes (Other)
  Sender: FDA-Public Use
  Company Number: US-PFIZER INC-2007082928

PATIENT
  Sex: Female

DRUGS (1)
  1. CHANTIX [Suspect]
     Dates: start: 20070110

REACTIONS (9)
  - ANXIETY [None]
  - CRYING [None]
  - DECREASED APPETITE [None]
  - EMOTIONAL DISORDER [None]
  - GUN SHOT WOUND [None]
  - NAUSEA [None]
  - POOR QUALITY SLEEP [None]
  - SELF INJURIOUS BEHAVIOUR [None]
  - WEIGHT DECREASED [None]
